FAERS Safety Report 11867000 (Version 3)
Quarter: 2016Q2

REPORT INFORMATION
  Report Type: Report from Study
  Country: JP (occurrence: JP)
  Receive Date: 20151224
  Receipt Date: 20160524
  Transmission Date: 20160815
  Serious: Yes (Death, Other)
  Sender: FDA-Public Use
  Company Number: JP-AMGEN-JPNCT2015138159

PATIENT
  Age: 94 Year
  Sex: Female
  Weight: 39 kg

DRUGS (4)
  1. CINACALCET HCL [Suspect]
     Active Substance: CINACALCET HYDROCHLORIDE
     Indication: HYPERPARATHYROIDISM PRIMARY
     Dosage: 25 MG, QD
     Route: 048
     Dates: start: 20140808
  2. ROZEREM [Concomitant]
     Active Substance: RAMELTEON
     Indication: DELIRIUM
     Dosage: 8 MG, UNK
     Route: 048
     Dates: end: 20140822
  3. MEMARY [Concomitant]
     Active Substance: MEMANTINE HYDROCHLORIDE
     Indication: DEMENTIA ALZHEIMER^S TYPE
     Dosage: 20 MG, UNK
     Route: 048
     Dates: end: 20140822
  4. PLETAAL [Concomitant]
     Active Substance: CILOSTAZOL
     Indication: SINUS NODE DYSFUNCTION
     Dosage: 200 MG, UNK
     Route: 048
     Dates: end: 20140822

REACTIONS (4)
  - Acute myocardial infarction [Fatal]
  - C-reactive protein increased [Not Recovered/Not Resolved]
  - Upper gastrointestinal haemorrhage [Not Recovered/Not Resolved]
  - Stress [Not Recovered/Not Resolved]

NARRATIVE: CASE EVENT DATE: 20140811
